FAERS Safety Report 26129762 (Version 1)
Quarter: 2025Q4

REPORT INFORMATION
  Report Type: Spontaneous
  Country: EU (occurrence: EU)
  Receive Date: 20251208
  Receipt Date: 20251208
  Transmission Date: 20260118
  Serious: Yes (Hospitalization, Other)
  Sender: ABBVIE
  Company Number: None

PATIENT
  Age: 74 Year
  Sex: Male

DRUGS (1)
  1. IBRUTINIB [Suspect]
     Active Substance: IBRUTINIB
     Indication: Hairy cell leukaemia recurrent
     Dosage: 420 MG/DAY
     Route: 048
     Dates: start: 20250903, end: 20251101

REACTIONS (4)
  - Chronic obstructive pulmonary disease [Recovering/Resolving]
  - Sepsis [Recovered/Resolved]
  - Cardiac failure [Recovering/Resolving]
  - Atrial fibrillation [Unknown]

NARRATIVE: CASE EVENT DATE: 20251101
